FAERS Safety Report 8772809 (Version 2)
Quarter: 2012Q4

REPORT INFORMATION
  Report Type: 
  Country: JP (occurrence: JP)
  Receive Date: 20120907
  Receipt Date: 20121121
  Transmission Date: 20130627
  Serious: Yes (Hospitalization, Other)
  Sender: FDA-Public Use
  Company Number: JP-009507513-1208JPN010245

PATIENT
  Age: 62 Year
  Sex: Female
  Weight: 49 kg

DRUGS (13)
  1. PEGINTRON [Suspect]
     Indication: CHRONIC HEPATITIS C
     Dosage: 1.5 Microgram per kilogram, qw
     Route: 058
     Dates: start: 20120502, end: 20121009
  2. REBETOL [Suspect]
     Indication: CHRONIC HEPATITIS C
     Dosage: 400 mg, qd
     Route: 048
     Dates: start: 20120502
  3. REBETOL [Suspect]
     Dosage: 200 mg, qd
     Route: 048
     Dates: start: 2012
  4. REBETOL [Suspect]
     Dosage: 400 mg, qd
     Route: 048
     Dates: start: 20120724, end: 20120806
  5. REBETOL [Suspect]
     Dosage: 200 mg, 400 mg/day
     Route: 048
     Dates: start: 20120807, end: 20120917
  6. REBETOL [Suspect]
     Dosage: 400 mg, qd
     Route: 048
     Dates: start: 20120918, end: 20121016
  7. TELAVIC [Suspect]
     Indication: CHRONIC HEPATITIS C
     Dosage: 2250 mg, qd
     Route: 048
     Dates: start: 20120502, end: 20120702
  8. TELAVIC [Suspect]
     Dosage: 1500 mg, qd
     Route: 048
     Dates: start: 20120703, end: 20120724
  9. VOGLIBOSE [Concomitant]
     Route: 048
  10. ACTOS [Concomitant]
     Route: 048
  11. NORVASC [Concomitant]
     Route: 048
  12. GASPORT D [Concomitant]
     Route: 048
  13. FERROMIA [Concomitant]
     Route: 048

REACTIONS (4)
  - Anaemia [Not Recovered/Not Resolved]
  - Nausea [Recovering/Resolving]
  - Vomiting [Recovering/Resolving]
  - Malaise [Not Recovered/Not Resolved]
